FAERS Safety Report 7018610-4 (Version None)
Quarter: 2010Q3

REPORT INFORMATION
  Report Type: 
  Country: None (occurrence: None)
  Receive Date: 20100924
  Receipt Date: 20100913
  Transmission Date: 20110219
  Serious: Yes (Other)
  Sender: FDA-Public Use
  Company Number: THQ2010A02593

PATIENT
  Sex: Female

DRUGS (6)
  1. LANSOPRAZOLE [Suspect]
     Indication: COUGH
     Dosage: PER ORAL
     Route: 048
  2. ASPIRIN [Concomitant]
  3. NASONEX [Concomitant]
  4. FLECAINIDE ACETATE [Concomitant]
  5. VERAPAMIL [Concomitant]
  6. BENDROFLUMETHIAZIDE [Concomitant]

REACTIONS (11)
  - ABDOMINAL PAIN UPPER [None]
  - BURNING SENSATION [None]
  - CONSTIPATION [None]
  - FIBROMYALGIA [None]
  - FLUID RETENTION [None]
  - HEADACHE [None]
  - IRRITABLE BOWEL SYNDROME [None]
  - LABILE BLOOD PRESSURE [None]
  - PALPITATIONS [None]
  - PHOTOSENSITIVITY REACTION [None]
  - VOMITING [None]
